FAERS Safety Report 5778086-1 (Version None)
Quarter: 2008Q2

REPORT INFORMATION
  Report Type: 
  Country: None (occurrence: None)
  Receive Date: 20080619
  Receipt Date: 20080609
  Transmission Date: 20081010
  Serious: Yes (Death, Life-Threatening)
  Sender: FDA-Public Use
  Company Number: MX-ELI_LILLY_AND_COMPANY-MX200806001979

PATIENT
  Age: 37 Year
  Sex: Male
  Weight: 70 kg

DRUGS (6)
  1. XIGRIS [Suspect]
     Indication: CARDIOVASCULAR DISORDER
     Dosage: 24 UG, UNKNOWN
     Route: 065
     Dates: start: 20080605
  2. DOPAMINE HCL [Concomitant]
     Dosage: UNK, UNKNOWN
     Route: 065
  3. PROPOFOL [Concomitant]
     Indication: SEDATIVE THERAPY
     Dosage: UNK, UNKNOWN
     Route: 065
  4. ENOXAPARIN SODIUM [Concomitant]
     Dosage: 40 MG, UNKNOWN
     Route: 065
  5. ANTIBIOTICS [Concomitant]
     Dosage: UNK, UNKNOWN
     Route: 065
  6. PLASMA [Concomitant]
     Dosage: 1 U, UNKNOWN
     Route: 065
     Dates: start: 20080601

REACTIONS (2)
  - BRADYCARDIA [None]
  - HYPOTENSION [None]
